FAERS Safety Report 16183700 (Version 1)
Quarter: 2019Q2

REPORT INFORMATION
  Report Type: Spontaneous
  Country: ZA (occurrence: ZA)
  Receive Date: 20190411
  Receipt Date: 20190411
  Transmission Date: 20190711
  Serious: Yes (Other)
  Sender: FDA-Public Use
  Company Number: ZA-GLAXOSMITHKLINE-ZA2019GSK051428

PATIENT
  Sex: Female

DRUGS (6)
  1. LAURA (LORATADINE) [Suspect]
     Active Substance: LORATADINE
     Indication: HYPERSENSITIVITY
     Dosage: 10 MG, UNK
     Route: 048
     Dates: start: 201810
  2. GLUCOPHAGE XR [Suspect]
     Active Substance: METFORMIN HYDROCHLORIDE
     Indication: DIABETES MELLITUS
     Dosage: 500 MG, UNK
     Route: 048
     Dates: start: 201902
  3. AVAMYS [Suspect]
     Active Substance: FLUTICASONE FUROATE
     Indication: RHINITIS ALLERGIC
     Dosage: 27 UG, UNK
     Route: 045
     Dates: start: 201810, end: 201812
  4. URBANOL [Suspect]
     Active Substance: CLOBAZAM
     Indication: ANXIETY
     Dosage: 10 MG, UNK
     Route: 048
     Dates: start: 201902
  5. ARCOXIA [Suspect]
     Active Substance: ETORICOXIB
     Indication: INFLAMMATION
     Dosage: 120 ML, UNK
     Route: 048
     Dates: start: 201902
  6. PURICOS [Suspect]
     Active Substance: ALLOPURINOL
     Indication: METABOLIC DISORDER PROPHYLAXIS
     Dosage: 300 MG, UNK
     Route: 048
     Dates: start: 201810

REACTIONS (1)
  - Diabetes mellitus [Unknown]
